FAERS Safety Report 23283544 (Version 1)
Quarter: 2023Q4

REPORT INFORMATION
  Report Type: Spontaneous
  Country: US (occurrence: US)
  Receive Date: 20231211
  Receipt Date: 20231211
  Transmission Date: 20240110
  Serious: No
  Sender: FDA-Public Use
  Company Number: US-MLMSERVICE-20231031-4628616-1

PATIENT
  Age: 75 Year
  Sex: Male

DRUGS (1)
  1. LIDOCAINE [Suspect]
     Active Substance: LIDOCAINE
     Indication: Post herpetic neuralgia
     Dosage: USED NEARLY EVERY DAY FOR THE PREVIOUS 3 YEARS.

REACTIONS (1)
  - Dermatitis contact [Recovered/Resolved]
